FAERS Safety Report 7620353-0 (Version None)
Quarter: 2011Q3

REPORT INFORMATION
  Report Type: 
  Country: None (occurrence: None)
  Receive Date: 20110718
  Receipt Date: 20110718
  Transmission Date: 20111222
  Serious: Yes (Other)
  Sender: FDA-Public Use
  Company Number: None

PATIENT
  Age: 36 Year
  Sex: Male
  Weight: 726.65 kg

DRUGS (1)
  1. OXALIPLATIN [Suspect]
     Indication: COLON CANCER
     Dosage: 160MG
     Route: 042
     Dates: start: 20110418, end: 20110516

REACTIONS (5)
  - PRURITUS [None]
  - THROAT TIGHTNESS [None]
  - ERYTHEMA [None]
  - INFUSION RELATED REACTION [None]
  - RASH MACULAR [None]
